FAERS Safety Report 5095050-9 (Version None)
Quarter: 2006Q3

REPORT INFORMATION
  Report Type: 
  Country: None (occurrence: None)
  Receive Date: 20060731
  Receipt Date: 20060412
  Transmission Date: 20061208
  Serious: No
  Sender: FDA-Public Use
  Company Number: 2006PV012005

PATIENT
  Age: 81 Year
  Sex: Female
  Weight: 60.782 kg

DRUGS (5)
  1. BYETTA [Suspect]
     Indication: DIABETES MELLITUS NON-INSULIN-DEPENDENT
     Dosage: 5 MCG;BID;SC
     Route: 058
     Dates: start: 20060411
  2. AMARYL [Concomitant]
  3. AVANDIA [Concomitant]
  4. DIURETIC [Concomitant]
  5. POTASSIUM [Concomitant]

REACTIONS (8)
  - ASTHENIA [None]
  - BLOOD GLUCOSE DECREASED [None]
  - DIZZINESS [None]
  - GASTROOESOPHAGEAL REFLUX DISEASE [None]
  - MENTAL IMPAIRMENT [None]
  - NAUSEA [None]
  - SHOCK HYPOGLYCAEMIC [None]
  - TREMOR [None]
